FAERS Safety Report 5195539-8 (Version None)
Quarter: 2006Q4

REPORT INFORMATION
  Report Type: 
  Country: None (occurrence: None)
  Receive Date: 20061222
  Receipt Date: 20061222
  Transmission Date: 20070319
  Serious: Yes (Hospitalization)
  Sender: FDA-Public Use
  Company Number: None

PATIENT
  Age: 21 Year
  Sex: Male
  Weight: 98 kg

DRUGS (4)
  1. MIDAZOLAM HYDROCHLORIDE [Suspect]
     Indication: DENTAL OPERATION
  2. MIDAZOLAM HYDROCHLORIDE [Suspect]
     Indication: SEDATION
  3. FENTANYL TRANSDERMAL SYSTEM [Suspect]
     Indication: ANALGESIC EFFECT
  4. FENTANYL TRANSDERMAL SYSTEM [Suspect]
     Indication: SEDATION

REACTIONS (1)
  - DELAYED RECOVERY FROM ANAESTHESIA [None]
